FAERS Safety Report 19922615 (Version 2)
Quarter: 2021Q4

REPORT INFORMATION
  Report Type: Spontaneous
  Country: AU (occurrence: None)
  Receive Date: 20211006
  Receipt Date: 20211201
  Transmission Date: 20220303
  Serious: Yes (Other)
  Sender: FDA-Public Use
  Company Number: 2021A755375

PATIENT
  Age: 735 Month
  Sex: Female

DRUGS (1)
  1. NEXIUM [Suspect]
     Active Substance: ESOMEPRAZOLE MAGNESIUM
     Dosage: 20MG MORNING AND NIGHT
     Route: 048

REACTIONS (4)
  - Hypersensitivity [Unknown]
  - Paraesthesia oral [Unknown]
  - Blood blister [Unknown]
  - Urticaria [Unknown]

NARRATIVE: CASE EVENT DATE: 20210701
